FAERS Safety Report 7388097-0 (Version None)
Quarter: 2011Q2

REPORT INFORMATION
  Report Type: 
  Country: None (occurrence: None)
  Receive Date: 20110401
  Receipt Date: 20110318
  Transmission Date: 20111010
  Serious: Yes (Death)
  Sender: FDA-Public Use
  Company Number: US-ELI_LILLY_AND_COMPANY-US201006002808

PATIENT
  Sex: Female

DRUGS (3)
  1. FORTEO [Suspect]
     Dosage: 20 UG, DAILY (1/D)
  2. FORTEO [Suspect]
     Indication: OSTEOPOROSIS
     Dosage: 20 UG, QD
  3. FORTEO [Suspect]
     Dosage: 20 UG, DAILY (1/D)

REACTIONS (7)
  - BLOOD TRIGLYCERIDES INCREASED [None]
  - PAIN IN EXTREMITY [None]
  - INJECTION SITE PAIN [None]
  - NEOPLASM MALIGNANT [None]
  - CATARACT [None]
  - EYE DISORDER [None]
  - FEELING ABNORMAL [None]
